FAERS Safety Report 6429969-0 (Version None)
Quarter: 2009Q4

REPORT INFORMATION
  Report Type: 
  Country: None (occurrence: None)
  Receive Date: 20091104
  Receipt Date: 20091104
  Transmission Date: 20100525
  Serious: Yes (Other)
  Sender: FDA-Public Use
  Company Number: None

PATIENT
  Age: 47 Year
  Sex: Female
  Weight: 60.3284 kg

DRUGS (1)
  1. MUCINEX [Suspect]
     Dates: start: 20091031, end: 20091101

REACTIONS (3)
  - AGITATION [None]
  - SLEEP DISORDER [None]
  - TREMOR [None]
